FAERS Safety Report 18339664 (Version 1)
Quarter: 2020Q4

REPORT INFORMATION
  Report Type: Other
  Country: NL (occurrence: NL)
  Receive Date: 20201002
  Receipt Date: 20201002
  Transmission Date: 20210113
  Serious: Yes (Hospitalization, Other)
  Sender: FDA-Public Use
  Company Number: NL-US-PROVELL PHARMACEUTICALS LLC-6020685

PATIENT
  Age: 72 Year
  Sex: Female

DRUGS (8)
  1. LEVOTHYROXINE. [Interacting]
     Active Substance: LEVOTHYROXINE
     Route: 048
  2. GLIVEC [Interacting]
     Active Substance: IMATINIB MESYLATE
     Indication: MEDULLARY THYROID CANCER
     Route: 048
  3. QUINAPRIL. [Concomitant]
     Active Substance: QUINAPRIL
     Indication: GASTROINTESTINAL STROMAL TUMOUR
  4. LEVOTHYROXINE. [Suspect]
     Active Substance: LEVOTHYROXINE
     Indication: GASTROINTESTINAL STROMAL TUMOUR
     Route: 048
  5. LEVOTHYROXINE. [Interacting]
     Active Substance: LEVOTHYROXINE
     Route: 048
  6. HYDROCHLOROTHIAZIDE. [Concomitant]
     Active Substance: HYDROCHLOROTHIAZIDE
     Indication: GASTROINTESTINAL STROMAL TUMOUR
  7. ALENDRONIC ACID [Concomitant]
     Active Substance: ALENDRONIC ACID
     Indication: GASTROINTESTINAL STROMAL TUMOUR
  8. GLIVEC [Interacting]
     Active Substance: IMATINIB MESYLATE
     Indication: GASTROINTESTINAL STROMAL TUMOUR
     Route: 048

REACTIONS (3)
  - Hypothyroidism [Recovered/Resolved]
  - Drug interaction [Recovered/Resolved]
  - Blood thyroid stimulating hormone increased [Recovered/Resolved]
